FAERS Safety Report 19950985 (Version 1)
Quarter: 2021Q4

REPORT INFORMATION
  Report Type: Spontaneous
  Country: US (occurrence: US)
  Receive Date: 20211014
  Receipt Date: 20211014
  Transmission Date: 20220303
  Serious: Yes (Death, Hospitalization)
  Sender: FDA-Public Use
  Company Number: US-JNJFOC-20211000658

PATIENT
  Age: 63 Year
  Sex: Female
  Weight: 76 kg

DRUGS (13)
  1. ACETAMINOPHEN [Suspect]
     Active Substance: ACETAMINOPHEN
     Indication: Product used for unknown indication
     Dosage: MORE THAN 99 DAYS
     Route: 048
  2. VICODIN [Suspect]
     Active Substance: ACETAMINOPHEN\HYDROCODONE BITARTRATE
     Indication: Product used for unknown indication
     Dosage: MORE THAN 99 DAYS
     Route: 048
  3. THEOPHYLLINE ANHYDROUS [Concomitant]
     Active Substance: THEOPHYLLINE ANHYDROUS
     Indication: Product used for unknown indication
     Dosage: DURATION MORE THAN 3 MONTHS
     Route: 065
     Dates: end: 20001201
  4. TRAZODONE [Concomitant]
     Active Substance: TRAZODONE HYDROCHLORIDE
     Indication: Product used for unknown indication
     Dosage: DURATION MORE THAN 3 MONTHS
     Route: 065
     Dates: end: 20001201
  5. VALIUM [Concomitant]
     Active Substance: DIAZEPAM
     Indication: Product used for unknown indication
     Dosage: DURATION MORE THAN 3 MONTHS
     Route: 065
     Dates: end: 20001201
  6. TERBUTALINE [Concomitant]
     Active Substance: TERBUTALINE
     Indication: Product used for unknown indication
     Dosage: DURATION MORE THAN 3 MONTHS
     Route: 065
     Dates: end: 20001201
  7. ALLEGRA [Concomitant]
     Active Substance: FEXOFENADINE HYDROCHLORIDE
     Indication: Product used for unknown indication
     Dosage: DURATION MORE THAN 3 MONTHS
     Route: 065
     Dates: end: 20001201
  8. DOXEPIN [Concomitant]
     Active Substance: DOXEPIN
     Indication: Product used for unknown indication
     Dosage: DURATION MORE THAN 3 MONTHS
     Route: 065
     Dates: end: 20001201
  9. LOBELIA INFLATA HERB [Concomitant]
     Indication: Product used for unknown indication
     Dosage: DURATION 2 MONTHS
     Route: 065
     Dates: end: 20001201
  10. NUX VOMICA EXTRACT [Concomitant]
     Active Substance: NUX VOMICA EXTRACT
     Indication: Product used for unknown indication
     Dosage: DURATION 2 MONTHS
     Route: 065
     Dates: end: 20001201
  11. AMARA [HERBAL EXTRACT NOS] [Concomitant]
     Indication: Product used for unknown indication
     Dosage: DURATION 2 MONTHS
     Route: 065
     Dates: end: 20001201
  12. LACTOSE [Concomitant]
     Active Substance: LACTOSE
     Indication: Product used for unknown indication
     Dosage: DURATION 2 MONTHS
     Route: 065
     Dates: end: 20001201
  13. IBUPROFEN [Concomitant]
     Active Substance: IBUPROFEN
     Indication: Product used for unknown indication
     Dosage: TOTAL DOSE: 2400 MG; DURATION MORE THAN 3 MONTHS
     Route: 065
     Dates: end: 20001201

REACTIONS (11)
  - Brain oedema [Fatal]
  - Sepsis [Fatal]
  - Chronic obstructive pulmonary disease [Fatal]
  - Staphylococcal infection [Fatal]
  - Beta haemolytic streptococcal infection [Fatal]
  - Serratia infection [Fatal]
  - Bacterial infection [Fatal]
  - Acute hepatic failure [Fatal]
  - Acute kidney injury [Fatal]
  - Sinus tachycardia [Fatal]
  - Intentional overdose [Fatal]
